FAERS Safety Report 8908054 (Version 2)
Quarter: 2012Q4

REPORT INFORMATION
  Report Type: 
  Country: US (occurrence: US)
  Receive Date: 20121113
  Receipt Date: 20121226
  Transmission Date: 20130627
  Serious: No
  Sender: FDA-Public Use
  Company Number: US-PFIZER INC-2012281417

PATIENT
  Age: 12 Year
  Sex: Male
  Weight: 43.08 kg

DRUGS (1)
  1. GENOTROPIN [Suspect]
     Indication: GROWTH HORMONE DEFICIENCY
     Dosage: 2 mg, daily
     Dates: start: 201209

REACTIONS (1)
  - Injection site pain [Unknown]
